FAERS Safety Report 23391422 (Version 1)
Quarter: 2024Q1

REPORT INFORMATION
  Report Type: Spontaneous
  Country: US (occurrence: US)
  Receive Date: 20240111
  Receipt Date: 20240111
  Transmission Date: 20240410
  Serious: No
  Sender: FDA-Public Use
  Company Number: US-drreddys-SPO/USA/23/0188032

PATIENT
  Age: 38 Year
  Sex: Female

DRUGS (1)
  1. ACCUTANE [Suspect]
     Active Substance: ISOTRETINOIN
     Indication: Acne
     Dates: start: 20230601

REACTIONS (3)
  - Cheilitis [Unknown]
  - Skin lesion [Recovering/Resolving]
  - Xerosis [Unknown]

NARRATIVE: CASE EVENT DATE: 20231031
